FAERS Safety Report 10161459 (Version 1)
Quarter: 2014Q2

REPORT INFORMATION
  Report Type: Spontaneous
  Country: US (occurrence: US)
  Receive Date: 20140509
  Receipt Date: 20140509
  Transmission Date: 20141212
  Serious: No
  Sender: FDA-Public Use
  Company Number: US-TEVA-417576USA

PATIENT
  Age: 16 Year
  Sex: Female

DRUGS (1)
  1. CLARAVIS [Suspect]
     Indication: NODULE
     Dosage: 80 MILLIGRAM DAILY;

REACTIONS (3)
  - Dental caries [Unknown]
  - Nodule [Unknown]
  - Pain of skin [Unknown]
